FAERS Safety Report 12424939 (Version 1)
Quarter: 2016Q2

REPORT INFORMATION
  Report Type: Spontaneous
  Country: US (occurrence: US)
  Receive Date: 20160601
  Receipt Date: 20160601
  Transmission Date: 20160815
  Serious: Yes (Hospitalization, Other)
  Sender: FDA-Public Use
  Company Number: US-009507513-1605USA014564

PATIENT
  Sex: Male

DRUGS (1)
  1. ZEPATIER [Suspect]
     Active Substance: ELBASVIR\GRAZOPREVIR
     Indication: CHRONIC HEPATITIS C
     Dosage: 100/50 MG, ONE PER DAY
     Route: 048
     Dates: start: 20160429

REACTIONS (2)
  - Drug dose omission [Unknown]
  - Renal failure [Unknown]

NARRATIVE: CASE EVENT DATE: 201605
